FAERS Safety Report 6875245-1 (Version None)
Quarter: 2010Q3

REPORT INFORMATION
  Report Type: 
  Country: None (occurrence: None)
  Receive Date: 20100727
  Receipt Date: 20100714
  Transmission Date: 20110219
  Serious: Yes (Hospitalization, Other)
  Sender: FDA-Public Use
  Company Number: JP-JNJFOC-20100704859

PATIENT
  Sex: Male
  Weight: 56 kg

DRUGS (17)
  1. REMICADE [Suspect]
     Indication: CROHN'S DISEASE
     Route: 042
  2. REMICADE [Suspect]
     Route: 042
  3. REMICADE [Suspect]
     Route: 042
  4. REMICADE [Suspect]
     Route: 042
  5. REMICADE [Suspect]
     Route: 042
  6. REMICADE [Suspect]
     Route: 042
  7. REMICADE [Suspect]
     Route: 042
  8. REMICADE [Suspect]
     Route: 042
  9. IMURAN [Suspect]
     Indication: CROHN'S DISEASE
     Route: 048
  10. PENTASA [Concomitant]
     Indication: CROHN'S DISEASE
     Route: 048
  11. BIO THREE [Concomitant]
     Indication: CROHN'S DISEASE
     Route: 048
  12. UNKNOWN ADRENAL HORMONE PREPARATIONS [Concomitant]
     Indication: PREMEDICATION
     Dosage: RECEIVED 8 DOSES DURING THIS TIME
  13. UNKNOWN ADRENAL HORMONE PREPARATIONS [Concomitant]
     Indication: PROPHYLAXIS
     Dosage: RECEIVED 8 DOSES DURING THIS TIME
  14. LEUKERIN [Concomitant]
     Indication: CROHN'S DISEASE
     Route: 048
  15. ELENTAL [Concomitant]
     Route: 051
  16. FOLIAMIN [Concomitant]
  17. FERROMIA [Concomitant]
     Indication: IRON DEFICIENCY ANAEMIA
     Route: 048

REACTIONS (3)
  - ABDOMINAL WALL ABSCESS [None]
  - GASTROINTESTINAL PERFORATION [None]
  - HEPATIC FUNCTION ABNORMAL [None]
